FAERS Safety Report 5122331-2 (Version None)
Quarter: 2006Q4

REPORT INFORMATION
  Report Type: 
  Country: None (occurrence: None)
  Receive Date: 20061003
  Receipt Date: 20060921
  Transmission Date: 20070319
  Serious: Yes (Death, Hospitalization)
  Sender: FDA-Public Use
  Company Number: 216735

PATIENT
  Age: 55 Year
  Sex: Male

DRUGS (6)
  1. XOLAIR [Suspect]
     Indication: ASTHMA
     Dosage: 150 MG, 1/MONTH, SUBCUTANEOUS
     Route: 058
     Dates: start: 20050420, end: 20050601
  2. ORAL STEROIDS (STEROID NOS) [Concomitant]
  3. QVAR 40 [Concomitant]
  4. ALBUTEROL (ALBUTEROL/ALBUTEROL SULFATE) [Concomitant]
  5. NORTRIPTYLINE HCL [Concomitant]
  6. TYLENOL W/ CODEINE NO. 3 [Concomitant]

REACTIONS (26)
  - ABDOMINAL PAIN [None]
  - ALLERGIC GRANULOMATOUS ANGIITIS [None]
  - ANTINEUTROPHIL CYTOPLASMIC ANTIBODY POSITIVE [None]
  - ANTINUCLEAR ANTIBODY POSITIVE [None]
  - DISORIENTATION [None]
  - EOSINOPHIL COUNT INCREASED [None]
  - GAIT DISTURBANCE [None]
  - GUILLAIN-BARRE SYNDROME [None]
  - HAEMORRHAGE [None]
  - HEPATIC CYST [None]
  - HYPERTENSION [None]
  - HYPOREFLEXIA [None]
  - LEUKOCYTOCLASTIC VASCULITIS [None]
  - MASS [None]
  - MONONEUROPATHY MULTIPLEX [None]
  - NEOPLASM [None]
  - NERVE DEGENERATION [None]
  - NEUROPATHY PERIPHERAL [None]
  - NODULE [None]
  - NORMOCHROMIC NORMOCYTIC ANAEMIA [None]
  - PAIN IN EXTREMITY [None]
  - PANCYTOPENIA [None]
  - PARAESTHESIA [None]
  - PURPURA [None]
  - RENAL DISORDER [None]
  - SCAR [None]
